FAERS Safety Report 16854810 (Version 1)
Quarter: 2019Q3

REPORT INFORMATION
  Report Type: Spontaneous
  Country: CA (occurrence: CA)
  Receive Date: 20190926
  Receipt Date: 20190926
  Transmission Date: 20191005
  Serious: Yes (Hospitalization)
  Sender: FDA-Public Use
  Company Number: CA-GLAXOSMITHKLINE-CA2019AMR170728

PATIENT
  Age: 50 Year
  Sex: Male

DRUGS (1)
  1. VOLTAREN EMULGEL UNKNOWN [Suspect]
     Active Substance: DICLOFENAC DIETHYLAMINE
     Indication: PAIN
     Dosage: UNK

REACTIONS (1)
  - Blood pressure increased [Recovered/Resolved]
